FAERS Safety Report 9258228 (Version 2)
Quarter: 2013Q2

REPORT INFORMATION
  Report Type: Spontaneous
  Country: BR (occurrence: BR)
  Receive Date: 20130426
  Receipt Date: 20130627
  Transmission Date: 20140414
  Serious: Yes (Other)
  Sender: FDA-Public Use
  Company Number: BR-PFIZER INC-2013126760

PATIENT
  Age: 70 Year
  Sex: Male

DRUGS (3)
  1. CARDURAN XL [Suspect]
     Indication: HYPERTENSION
     Dosage: 4 MG, UNK
     Dates: start: 20130418, end: 2013
  2. PURAN T4 [Concomitant]
     Indication: THYROIDECTOMY
     Dosage: 125 MG, DAILY
  3. ENALAPRIL [Concomitant]
     Dosage: 20 MG, DAILY

REACTIONS (5)
  - Nocturnal dyspnoea [Unknown]
  - Chest pain [Unknown]
  - Arrhythmia [Unknown]
  - Malaise [Unknown]
  - Wrong technique in drug usage process [Unknown]
